FAERS Safety Report 23871589 (Version 1)
Quarter: 2024Q2

REPORT INFORMATION
  Report Type: Spontaneous
  Country: US (occurrence: US)
  Receive Date: 20240519
  Receipt Date: 20240519
  Transmission Date: 20240716
  Serious: Yes (Hospitalization, Other)
  Sender: FDA-Public Use
  Company Number: US-JNJFOC-20240534584

PATIENT
  Sex: Male

DRUGS (4)
  1. UPTRAVI [Suspect]
     Active Substance: SELEXIPAG
     Indication: Product used for unknown indication
     Route: 048
  2. AMBRISENTAN [Suspect]
     Active Substance: AMBRISENTAN
     Indication: Pulmonary hypertension
     Route: 065
     Dates: start: 20140429
  3. AMBRISENTAN [Suspect]
     Active Substance: AMBRISENTAN
     Route: 065
     Dates: start: 20140429
  4. AMBRISENTAN [Suspect]
     Active Substance: AMBRISENTAN
     Route: 065
     Dates: start: 20140429

REACTIONS (12)
  - Carotid artery dissection [Unknown]
  - Neck surgery [Unknown]
  - Spinal fusion surgery [Recovering/Resolving]
  - Cerebrovascular accident [Unknown]
  - Cerebral haemorrhage [Unknown]
  - Procedural complication [Unknown]
  - Decreased appetite [Unknown]
  - Confusional state [Unknown]
  - Nausea [Unknown]
  - Paraesthesia [Unknown]
  - Insomnia [Unknown]
  - Photophobia [Unknown]

NARRATIVE: CASE EVENT DATE: 20230719
